FAERS Safety Report 16522933 (Version 1)
Quarter: 2019Q3

REPORT INFORMATION
  Report Type: Spontaneous
  Country: US (occurrence: US)
  Receive Date: 20190702
  Receipt Date: 20190702
  Transmission Date: 20191004
  Serious: No
  Sender: FDA-Public Use
  Company Number: US-TEVA-2019-US-1063874

PATIENT
  Sex: Female

DRUGS (1)
  1. ESTRADIOL BARR [Suspect]
     Active Substance: ESTRADIOL
     Indication: INADEQUATE LUBRICATION

REACTIONS (1)
  - Product use in unapproved indication [Unknown]
